FAERS Safety Report 5284672-8 (Version None)
Quarter: 2007Q1

REPORT INFORMATION
  Report Type: 
  Country: None (occurrence: None)
  Receive Date: 20061222
  Receipt Date: 20060524
  Transmission Date: 20070707
  Serious: Yes (Other)
  Sender: FDA-Public Use
  Company Number: CHPA2006US05221

PATIENT
  Age: 70 Year
  Sex: Female
  Weight: 77.1 kg

DRUGS (6)
  1. TRANSDERM SCOP [Suspect]
     Indication: PROPHYLAXIS AGAINST MOTION SICKNESS
     Dosage: 1.5 MG ONCE SINGLE, TRANSDERMAL
     Route: 062
     Dates: start: 20060522, end: 20060523
  2. LOPRESSOR [Concomitant]
  3. MONOPRIL [Concomitant]
  4. SYNTHROID [Concomitant]
  5. ZETIA [Concomitant]
  6. PRILOSEC [Concomitant]

REACTIONS (1)
  - CONFUSIONAL STATE [None]
